FAERS Safety Report 10257845 (Version 1)
Quarter: 2014Q2

REPORT INFORMATION
  Report Type: Spontaneous
  Country: DE (occurrence: None)
  Receive Date: 20140620
  Receipt Date: 20140620
  Transmission Date: 20141212
  Serious: Yes (Hospitalization)
  Sender: FDA-Public Use
  Company Number: COL_16313_2014

PATIENT
  Age: 53 Year
  Sex: Male

DRUGS (1)
  1. DURAPHAT [Suspect]
     Indication: PRODUCT USED FOR UNKNOWN INDICATION
     Dosage: NI/ NI/ ORAL
     Route: 048
     Dates: start: 2012

REACTIONS (3)
  - Hypersensitivity [None]
  - Swollen tongue [None]
  - Swelling face [None]
